FAERS Safety Report 4628204-3 (Version None)
Quarter: 2005Q2

REPORT INFORMATION
  Report Type: 
  Country: None (occurrence: None)
  Receive Date: 20050406
  Receipt Date: 20040927
  Transmission Date: 20051028
  Serious: Yes (Hospitalization)
  Sender: FDA-Public Use
  Company Number: US-SANOFI-SYNTHELABO-F01200402936

PATIENT
  Sex: Female
  Weight: 34.5 kg

DRUGS (17)
  1. OXALIPLATIN [Suspect]
     Indication: NON-SMALL CELL LUNG CANCER
     Route: 042
     Dates: start: 20040908, end: 20040908
  2. GEMCITABINE [Suspect]
     Route: 042
     Dates: start: 20040908, end: 20040908
  3. ALBUTEROL [Concomitant]
     Indication: CHRONIC OBSTRUCTIVE PULMONARY DISEASE
     Dosage: 0.63 MG
     Route: 055
     Dates: start: 19980101
  4. FOSAMAX [Concomitant]
     Indication: OSTEOPOROSIS
     Route: 048
     Dates: start: 20010101
  5. PROZAC [Concomitant]
     Indication: DEPRESSION
     Dosage: 20 MG
     Route: 048
     Dates: start: 20010101
  6. VERAPAMIL [Concomitant]
     Indication: SINUS TACHYCARDIA
     Dosage: 180 MG
     Route: 048
     Dates: start: 20010101
  7. M.V.I. [Concomitant]
     Dosage: 1 UNIT
     Route: 048
     Dates: start: 20010101
  8. CA+ WITH VIT D [Concomitant]
     Dosage: 600 MG
     Route: 048
     Dates: start: 20010101
  9. PREDNISONE [Concomitant]
     Indication: CHRONIC OBSTRUCTIVE PULMONARY DISEASE
     Dosage: 10 MG
     Route: 048
     Dates: start: 20040201
  10. VALIUM [Concomitant]
     Indication: ANXIETY
     Dosage: 5 MG
     Route: 048
     Dates: start: 20010101
  11. COMPAZINE [Concomitant]
     Indication: NAUSEA
     Dosage: 10 MG
     Route: 048
     Dates: start: 20040617
  12. SPIRIVA [Concomitant]
     Indication: CHRONIC OBSTRUCTIVE PULMONARY DISEASE
     Dosage: UNK
     Route: 055
     Dates: start: 20040708
  13. XOPENEX [Concomitant]
     Indication: CHRONIC OBSTRUCTIVE PULMONARY DISEASE
     Route: 055
     Dates: start: 20040708
  14. TYLENOL (CAPLET) [Concomitant]
     Indication: PAIN
     Route: 048
     Dates: start: 19500101
  15. OXYGEN [Concomitant]
     Indication: CHRONIC OBSTRUCTIVE PULMONARY DISEASE
     Dosage: 2 L
     Route: 045
     Dates: start: 20010101
  16. K-DUR 10 [Concomitant]
     Indication: HYPOKALAEMIA
     Route: 048
     Dates: start: 20040910, end: 20041016
  17. LEVAQUIN [Concomitant]
     Indication: NEUTROPENIA
     Dosage: 500 MG
     Route: 048
     Dates: start: 20040901, end: 20040908

REACTIONS (17)
  - BLOOD PRESSURE DIASTOLIC DECREASED [None]
  - CACHEXIA [None]
  - CHRONIC OBSTRUCTIVE PULMONARY DISEASE [None]
  - DISEASE PROGRESSION [None]
  - DIZZINESS [None]
  - FATIGUE [None]
  - GENERAL PHYSICAL HEALTH DETERIORATION [None]
  - HYPERKALAEMIA [None]
  - HYPONATRAEMIA [None]
  - LIVER FUNCTION TEST ABNORMAL [None]
  - MALAISE [None]
  - MALNUTRITION [None]
  - MUSCULAR WEAKNESS [None]
  - ORAL INTAKE REDUCED [None]
  - PLEURAL EFFUSION [None]
  - TACHYCARDIA [None]
  - THROMBOCYTOPENIA [None]
